FAERS Safety Report 18341698 (Version 2)
Quarter: 2020Q4

REPORT INFORMATION
  Report Type: Spontaneous
  Country: AT (occurrence: AT)
  Receive Date: 20201005
  Receipt Date: 20201007
  Transmission Date: 20210113
  Serious: Yes (Other)
  Sender: FDA-Public Use
  Company Number: AT-SA-2020SA269425

PATIENT

DRUGS (3)
  1. BECLOMET [BECLOMETASONE DIPROPIONATE] [Concomitant]
     Indication: ASTHMA
     Dosage: 0.4 MG 1-2 TIMES A DAY
  2. MOMETAHEXAL [Concomitant]
     Active Substance: MOMETASONE
     Indication: NASAL POLYPS
     Dosage: 50 UG, QD
  3. DUPIXENT [Suspect]
     Active Substance: DUPILUMAB
     Indication: PAPULE
     Dosage: 300 MG
     Dates: start: 20200625

REACTIONS (4)
  - Pleurisy [Not Recovered/Not Resolved]
  - Dyspnoea exertional [Recovered/Resolved]
  - Pleural effusion [Not Recovered/Not Resolved]
  - Chest pain [Recovered/Resolved]

NARRATIVE: CASE EVENT DATE: 202006
